FAERS Safety Report 7564504-5 (Version None)
Quarter: 2011Q2

REPORT INFORMATION
  Report Type: 
  Country: None (occurrence: None)
  Receive Date: 20110622
  Receipt Date: 20110620
  Transmission Date: 20111010
  Serious: Yes (Life-Threatening, Hospitalization, Other)
  Sender: FDA-Public Use
  Company Number: PHHO2011GB06766

PATIENT
  Sex: Female

DRUGS (22)
  1. DAUNORUBICIN HCL [Concomitant]
     Route: 042
  2. ONDANSETRON [Concomitant]
  3. MORPHINE [Concomitant]
  4. PREDNISOLONE [Concomitant]
  5. RANITIDINE [Concomitant]
  6. ACYCLOVIR [Concomitant]
  7. METHOTREXATE [Concomitant]
     Route: 042
  8. POTASSIUM [Concomitant]
  9. GELCLAIR [Concomitant]
  10. SCOPOLAMINE [Concomitant]
  11. TPN [Concomitant]
  12. CETIRIZINE HCL [Concomitant]
  13. SUCRALFATE [Concomitant]
  14. MAGNESIUM GLYCEROPHOSPHATE [Concomitant]
  15. GLEEVEC [Suspect]
     Indication: ACUTE LYMPHOCYTIC LEUKAEMIA
     Dosage: UNK
     Route: 048
     Dates: end: 20110415
  16. GLEEVEC [Suspect]
     Dosage: UNK
     Route: 048
     Dates: start: 20110527
  17. DEXAMETHASONE [Concomitant]
     Dosage: UNK
     Route: 048
     Dates: end: 20110531
  18. LEUCOVORIN CALCIUM [Concomitant]
     Route: 042
  19. VINDESINE [Concomitant]
     Route: 042
  20. IFOSFAMIDE [Concomitant]
     Route: 042
  21. ONCASPAR [Concomitant]
     Route: 030
  22. CYTARABINE [Concomitant]

REACTIONS (5)
  - MUCOSAL INFLAMMATION [None]
  - NEUTROPENIA [None]
  - SEPTIC SHOCK [None]
  - SEPSIS [None]
  - GASTROINTESTINAL HAEMORRHAGE [None]
